FAERS Safety Report 16440857 (Version 1)
Quarter: 2019Q2

REPORT INFORMATION
  Report Type: Report from Study
  Country: IT (occurrence: IT)
  Receive Date: 20190617
  Receipt Date: 20190617
  Transmission Date: 20190711
  Serious: Yes (Death)
  Sender: FDA-Public Use
  Company Number: IT-PFIZER INC-2019255864

PATIENT

DRUGS (3)
  1. CARBOPLATIN. [Suspect]
     Active Substance: CARBOPLATIN
     Indication: NON-SMALL CELL LUNG CANCER
     Dosage: 250 MG/M2, CYCLIC (ON DAY 1)
  2. ETOPOSIDE. [Suspect]
     Active Substance: ETOPOSIDE
     Indication: NON-SMALL CELL LUNG CANCER
     Dosage: 100 MG/M2, CYCLIC (ON DAYS 1, 2, 3)
  3. MITOMYCIN C [Suspect]
     Active Substance: MITOMYCIN
     Indication: NON-SMALL CELL LUNG CANCER
     Dosage: 8 MG/M2, CYCLIC (ON DAY 1)

REACTIONS (1)
  - Pulmonary embolism [Fatal]
